FAERS Safety Report 8318702 (Version 2)
Quarter: 2013Q1

REPORT INFORMATION
  Report Type: Spontaneous
  Country: US (occurrence: US)
  Receive Date: 20120103
  Receipt Date: 20130221
  Transmission Date: 20140127
  Serious: Yes (Life-Threatening, Congenital Anomaly, Other)
  Sender: FDA-Public Use
  Company Number: US-PFIZER INC-2011289495

PATIENT
  Sex: Male

DRUGS (7)
  1. ZOLOFT [Suspect]
     Dosage: UNK
     Route: 064
  2. EFFEXOR [Concomitant]
     Dosage: UNK
     Route: 064
  3. ZYPREXA [Concomitant]
     Dosage: UNK
     Route: 064
  4. PRENATAL VITAMINS [Concomitant]
     Dosage: UNK
     Route: 064
  5. TEGRETOL [Concomitant]
     Dosage: UNK
     Route: 064
  6. GLUCOPHAGE [Concomitant]
     Dosage: UNK
     Route: 064
  7. TYLENOL 3 [Concomitant]
     Dosage: UNK

REACTIONS (4)
  - Maternal exposure timing unspecified [Unknown]
  - Holt-Oram syndrome [Unknown]
  - Atrial septal defect [Unknown]
  - Pulmonary vascular disorder [Unknown]
